FAERS Safety Report 12992324 (Version 3)
Quarter: 2017Q1

REPORT INFORMATION
  Report Type: Spontaneous
  Country: IL (occurrence: IL)
  Receive Date: 20161202
  Receipt Date: 20170102
  Transmission Date: 20170428
  Serious: Yes (Hospitalization)
  Sender: FDA-Public Use
  Company Number: IL-BAXTER-2016BAX060023

PATIENT
  Sex: Female

DRUGS (12)
  1. STERILE WATER FOR INJECTION [Suspect]
     Active Substance: WATER
     Indication: MALNUTRITION
     Route: 042
     Dates: start: 201606, end: 201611
  2. SODIUM CHLORIDE. [Suspect]
     Active Substance: SODIUM CHLORIDE
     Indication: MALNUTRITION
     Route: 042
     Dates: start: 201606, end: 201611
  3. ADDAMEL [Suspect]
     Active Substance: ELECTROLYTES NOS\MINERALS\SORBITOL
     Indication: MALNUTRITION
     Route: 042
     Dates: start: 201606, end: 201611
  4. POTASSIUM CHLORIDE. [Suspect]
     Active Substance: POTASSIUM CHLORIDE
     Indication: MALNUTRITION
     Route: 042
     Dates: start: 201606, end: 201611
  5. MAGNESIUM SULFATE. [Suspect]
     Active Substance: MAGNESIUM SULFATE
     Indication: MALNUTRITION
     Route: 042
     Dates: start: 201606, end: 201611
  6. AERIUS [Concomitant]
     Active Substance: DESLORATADINE
     Indication: PRODUCT USED FOR UNKNOWN INDICATION
     Route: 065
  7. CERNEVIT [Suspect]
     Active Substance: VITAMINS
     Indication: MALNUTRITION
     Route: 042
     Dates: start: 201606, end: 201611
  8. CALCIUM GLUCONATE. [Suspect]
     Active Substance: CALCIUM GLUCONATE
     Indication: MALNUTRITION
     Route: 042
     Dates: start: 201606, end: 201611
  9. CLINOLEIC  20% [Suspect]
     Active Substance: OLIVE OIL\SOYBEAN OIL
     Indication: MALNUTRITION
     Route: 042
     Dates: start: 201606, end: 201611
  10. DEXTROSE INJECTION USP 5.0% W/V [Suspect]
     Active Substance: DEXTROSE\WATER
     Indication: MALNUTRITION
     Route: 042
     Dates: start: 201606, end: 201611
  11. SYNTHAMIN [Suspect]
     Active Substance: AMINO ACIDS
     Indication: MALNUTRITION
     Route: 042
     Dates: start: 201606, end: 201611
  12. SODIUM GLYCEROPHOSPHATE [Suspect]
     Active Substance: SODIUM GLYCEROPHOSPHATE
     Indication: MALNUTRITION
     Route: 042
     Dates: start: 201606, end: 201611

REACTIONS (6)
  - Paraesthesia [Recovering/Resolving]
  - Rash generalised [Recovering/Resolving]
  - Pruritus [Recovering/Resolving]
  - Swelling face [Recovering/Resolving]
  - Device related infection [Recovered/Resolved]
  - Laceration [Recovering/Resolving]

NARRATIVE: CASE EVENT DATE: 2016
